FAERS Safety Report 17686431 (Version 1)
Quarter: 2020Q2

REPORT INFORMATION
  Report Type: Spontaneous
  Country: US (occurrence: US)
  Receive Date: 20200420
  Receipt Date: 20200420
  Transmission Date: 20200714
  Serious: Yes (Disabling, Other)
  Sender: FDA-Public Use
  Company Number: US-ADVANZ PHARMA-202004003537

PATIENT

DRUGS (1)
  1. HYDROXYCHLOROQUINE [Suspect]
     Active Substance: HYDROXYCHLOROQUINE
     Dosage: 800 MG, QD

REACTIONS (6)
  - Retinopathy [Not Recovered/Not Resolved]
  - Central vision loss [Not Recovered/Not Resolved]
  - Macular degeneration [Not Recovered/Not Resolved]
  - Retinal toxicity [Not Recovered/Not Resolved]
  - Maculopathy [Not Recovered/Not Resolved]
  - Vision blurred [Not Recovered/Not Resolved]
